FAERS Safety Report 8189747-1 (Version None)
Quarter: 2012Q1

REPORT INFORMATION
  Report Type: 
  Country: None (occurrence: None)
  Receive Date: 20120305
  Receipt Date: 20120217
  Transmission Date: 20120608
  Serious: No
  Sender: FDA-Public Use
  Company Number: PERC20120035

PATIENT
  Sex: Male

DRUGS (1)
  1. PERCOCET [Suspect]
     Indication: PAIN
     Dosage: UNKNOWN, UNKNOWN, ORAL
     Route: 048

REACTIONS (1)
  - DRUG INEFFECTIVE [None]
